FAERS Safety Report 5228497-8 (Version None)
Quarter: 2007Q1

REPORT INFORMATION
  Report Type: 
  Country: None (occurrence: None)
  Receive Date: 20070205
  Receipt Date: 20070123
  Transmission Date: 20070707
  Serious: Yes (Other)
  Sender: FDA-Public Use
  Company Number: 467692

PATIENT
  Age: 71 Year
  Sex: Female
  Weight: 37 kg

DRUGS (17)
  1. TAMIFLU [Suspect]
     Dosage: DOSE INCREASED.
     Route: 048
     Dates: start: 20060303, end: 20060306
  2. TAMIFLU [Suspect]
     Route: 048
     Dates: start: 20060302, end: 20060302
  3. TAMIFLU [Suspect]
     Route: 048
     Dates: start: 20060307, end: 20060307
  4. AMINOPHYLLINE [Suspect]
     Dosage: ROUTE REPORTED AS INTRAVENOUS (NOT OTHERWISE SPECIFIED).
     Route: 042
     Dates: start: 20060303, end: 20060306
  5. AMINOPHYLLINE [Suspect]
     Route: 042
     Dates: start: 20060227, end: 20060227
  6. AMINOPHYLLINE [Suspect]
     Dosage: DOSAGE INCREASED.
     Route: 042
     Dates: start: 20060228, end: 20060228
  7. AMINOPHYLLINE [Suspect]
     Route: 042
     Dates: start: 20060301, end: 20060301
  8. AMINOPHYLLINE [Suspect]
     Route: 042
     Dates: start: 20060302, end: 20060302
  9. ZITHROMAC [Suspect]
     Route: 048
     Dates: start: 20060302, end: 20060305
  10. SINGULAIR [Concomitant]
     Dosage: START DATE BEFORE 26 DECEMBER 2006.
     Route: 048
  11. GOODMIN [Concomitant]
     Dosage: START DATE REPORTED AS BEFORE 08 OCTOBER 2005.
     Route: 048
  12. SPIROPENT [Concomitant]
     Dosage: START DATE REPORTED AS BEFORE 26 FEBRUARY 2006.
     Route: 048
  13. FAMOTIDINE [Concomitant]
     Dosage: FORM REPORTED AS FINE GRANULE. START DATE REPORTED AS BEFORE 26 FEBRUARY 2006.
     Route: 048
  14. MERCAZOLE [Concomitant]
     Dosage: START DATE REPORTED AS BEFORE 08 OCTOBER 2006.
     Route: 048
  15. SPELEAR [Concomitant]
     Dosage: START DATE REPORTED AS BEFORE 26 FEBRUARY 2006.
     Route: 048
  16. PREDNISOLONE [Concomitant]
     Dosage: ON 03 MARCH 2006, PREDNISOLONE WAS REDUCED TO 20 MG ONCE DAILY. ON 07 MARCH 2006, PREDNISOLONE WAS +
     Route: 048
     Dates: start: 20060302
  17. NAPA [Concomitant]
     Dosage: GENERIC REPORTED AS ACETAMINOPHEN. NOTE: A DOSE/0.5G.
     Route: 048
     Dates: start: 20060302, end: 20060302

REACTIONS (1)
  - DELIRIUM [None]
